FAERS Safety Report 13080545 (Version 2)
Quarter: 2017Q1

REPORT INFORMATION
  Report Type: Spontaneous
  Country: US (occurrence: US)
  Receive Date: 20170103
  Receipt Date: 20170109
  Transmission Date: 20170428
  Serious: Yes (Hospitalization)
  Sender: FDA-Public Use
  Company Number: US-UNITED THERAPEUTICS-UNT-2016-019721

PATIENT
  Sex: Female

DRUGS (2)
  1. REMODULIN [Suspect]
     Active Substance: TREPROSTINIL
     Indication: PULMONARY ARTERIAL HYPERTENSION
     Dosage: 0.1723 ?G/KG, CONTINUING
     Route: 041
     Dates: start: 20120703
  2. REMODULIN [Suspect]
     Active Substance: TREPROSTINIL
     Dosage: 0.1723 ?G/KG, CONTINUING
     Route: 041
     Dates: start: 20161210

REACTIONS (3)
  - Device related infection [Unknown]
  - Central venous catheterisation [Unknown]
  - Fall [Unknown]

NARRATIVE: CASE EVENT DATE: 201612
